FAERS Safety Report 19411941 (Version 1)
Quarter: 2021Q2

REPORT INFORMATION
  Report Type: Spontaneous
  Country: DE (occurrence: DE)
  Receive Date: 20210614
  Receipt Date: 20210614
  Transmission Date: 20210717
  Serious: Yes (Death)
  Sender: FDA-Public Use
  Company Number: DE-009507513-2106DEU002997

PATIENT
  Age: 8 Decade
  Sex: Male

DRUGS (2)
  1. PEMBROLIZUMAB. [Suspect]
     Active Substance: PEMBROLIZUMAB
     Dosage: 200 MG, EVERY 3 WEEKS
  2. INLYTA [Suspect]
     Active Substance: AXITINIB
     Dosage: 10 MILLIGRAM, QD, 5 MG, 2X/DAY

REACTIONS (2)
  - Off label use [Unknown]
  - Death [Fatal]
